FAERS Safety Report 24638816 (Version 2)
Quarter: 2024Q4

REPORT INFORMATION
  Report Type: Report from Study
  Country: ES (occurrence: ES)
  Receive Date: 20241119
  Receipt Date: 20241129
  Transmission Date: 20250115
  Serious: Yes (Hospitalization, Other)
  Sender: SUNOVION
  Company Number: ES-BIAL-BIAL-17723

PATIENT

DRUGS (7)
  1. ESLICARBAZEPINE ACETATE [Suspect]
     Active Substance: ESLICARBAZEPINE ACETATE
     Indication: Product used for unknown indication
     Dosage: UNK UNK, UNKNOWN
     Route: 065
  2. CENOBAMATE [Suspect]
     Active Substance: CENOBAMATE
     Indication: Epilepsy
     Dosage: 150 MILLIGRAM, QD (ON TREATMENT WITH 150 MG/DAY A MONTH AGO)
     Route: 048
     Dates: start: 20240612
  3. CENOBAMATE [Suspect]
     Active Substance: CENOBAMATE
     Dosage: 200 MILLIGRAM, QD
     Route: 065
  4. VIMPAT [Concomitant]
     Active Substance: LACOSAMIDE
     Indication: Product used for unknown indication
     Dosage: UNK, BID (1-0-1)
     Route: 065
  5. VIMPAT [Concomitant]
     Active Substance: LACOSAMIDE
     Dosage: 1-0-1
     Route: 065
  6. BRIVIACT [Concomitant]
     Active Substance: BRIVARACETAM
     Indication: Product used for unknown indication
     Dosage: 100 MG EVERY 12H (1-0-1)
     Route: 065
  7. CLOBAZAM [Concomitant]
     Active Substance: CLOBAZAM
     Indication: Nervousness
     Dosage: HIS DOCTOR HAS INSTRUCTED HIM TO TAKE HALF A CLOBAZAM TABLET (5MG, IN ADDITION TO THE 10MG HE TAKES
     Route: 065

REACTIONS (10)
  - Seizure [Not Recovered/Not Resolved]
  - Loss of consciousness [Not Recovered/Not Resolved]
  - Dizziness [Unknown]
  - Fall [Unknown]
  - Drug interaction [Not Recovered/Not Resolved]
  - Off label use [Not Recovered/Not Resolved]
  - Drug ineffective [Not Recovered/Not Resolved]
  - Lip injury [Recovering/Resolving]
  - Nervousness [Not Recovered/Not Resolved]
  - Malaise [Unknown]
